FAERS Safety Report 21082191 (Version 1)
Quarter: 2022Q3

REPORT INFORMATION
  Report Type: Spontaneous
  Country: US (occurrence: US)
  Receive Date: 20220714
  Receipt Date: 20220714
  Transmission Date: 20221027
  Serious: Yes (Death, Other)
  Sender: FDA-Public Use
  Company Number: US-SAGENT PHARMACEUTICALS-2022SAG001467

PATIENT

DRUGS (5)
  1. DECITABINE [Suspect]
     Active Substance: DECITABINE
     Indication: KMT2A gene mutation
     Dosage: 7.5 MG/M2 (DOSE LEVEL 1)
  2. FLUDARABINE PHOSPHATE [Suspect]
     Active Substance: FLUDARABINE PHOSPHATE
     Indication: KMT2A gene mutation
     Dosage: 30 MG/M2, DAYS 6 TO 10
  3. VORINOSTAT [Suspect]
     Active Substance: VORINOSTAT
     Indication: KMT2A gene mutation
     Dosage: 180 MG/M2 ONCE DAILY
  4. CYTARABINE [Suspect]
     Active Substance: CYTARABINE
     Indication: KMT2A gene mutation
     Dosage: 2,000 MG/M2, DAYS 6 TO 10
  5. FILGRASTIM [Suspect]
     Active Substance: FILGRASTIM
     Indication: KMT2A gene mutation
     Dosage: 5 ?G/KG/DOSE DAY 5 UNTIL NEUTROPHIL RECOVERY

REACTIONS (4)
  - Gastrointestinal haemorrhage [Fatal]
  - Colitis [Unknown]
  - Enterocolitis [Unknown]
  - Septic shock [Unknown]
